FAERS Safety Report 19249807 (Version 1)
Quarter: 2021Q2

REPORT INFORMATION
  Report Type: Spontaneous
  Country: US (occurrence: US)
  Receive Date: 20210512
  Receipt Date: 20210512
  Transmission Date: 20210717
  Serious: Yes (Other)
  Sender: FDA-Public Use
  Company Number: US-UCBSA-2020046344

PATIENT
  Sex: Female

DRUGS (23)
  1. CIMZIA [Suspect]
     Active Substance: CERTOLIZUMAB PEGOL
     Indication: PSORIATIC ARTHROPATHY
     Dosage: 200 MILLIGRAM, UNK
     Route: 058
     Dates: end: 20200930
  2. JANUVIA [Concomitant]
     Active Substance: SITAGLIPTIN PHOSPHATE
  3. VALTREX [Concomitant]
     Active Substance: VALACYCLOVIR HYDROCHLORIDE
  4. MOMETASONE FUROATE. [Concomitant]
     Active Substance: MOMETASONE FUROATE
  5. GINGER [ZINGIBER OFFICINALE] [Concomitant]
     Active Substance: GINGER
  6. FOLIC ACID. [Concomitant]
     Active Substance: FOLIC ACID
  7. FLEXERIL [CEFIXIME] [Concomitant]
     Active Substance: CEFIXIME
  8. ZYRTEC [Concomitant]
     Active Substance: CETIRIZINE HYDROCHLORIDE
  9. DEXILANT [Concomitant]
     Active Substance: DEXLANSOPRAZOLE
  10. DULOXETINE HYDROCHLORIDE. [Concomitant]
     Active Substance: DULOXETINE HYDROCHLORIDE
  11. ABILIFY [Concomitant]
     Active Substance: ARIPIPRAZOLE
  12. METFORMIN HYDROCHLORIDE. [Concomitant]
     Active Substance: METFORMIN HYDROCHLORIDE
  13. PLAQUENIL [Concomitant]
     Active Substance: HYDROXYCHLOROQUINE SULFATE
  14. METHOTREXATE. [Concomitant]
     Active Substance: METHOTREXATE
  15. LYSINE HCL [Concomitant]
  16. VENTOLIN HFA [Concomitant]
     Active Substance: ALBUTEROL SULFATE
  17. TURMERIC CURCUMIN [CURCUMA LONGA] [Concomitant]
  18. TRANDOLAPRIL. [Concomitant]
     Active Substance: TRANDOLAPRIL
  19. CARVEDILOL. [Concomitant]
     Active Substance: CARVEDILOL
  20. GABAPENTIN. [Concomitant]
     Active Substance: GABAPENTIN
  21. SEROQUEL [Concomitant]
     Active Substance: QUETIAPINE FUMARATE
  22. SINGULAIR [Concomitant]
     Active Substance: MONTELUKAST SODIUM
  23. PULMICORT TURBUHALER [Concomitant]
     Active Substance: BUDESONIDE

REACTIONS (1)
  - Transient ischaemic attack [Unknown]
